FAERS Safety Report 8727700 (Version 2)
Quarter: 2013Q1

REPORT INFORMATION
  Report Type: Report from Study
  Country: CA (occurrence: CA)
  Receive Date: 20120816
  Receipt Date: 20130116
  Transmission Date: 20140127
  Serious: Yes (Hospitalization)
  Sender: FDA-Public Use
  Company Number: CA-ROCHE-1102117

PATIENT
  Sex: Male
  Weight: 69.46 kg

DRUGS (10)
  1. RITUXAN [Suspect]
     Indication: IDIOPATHIC THROMBOCYTOPENIC PURPURA
     Route: 042
     Dates: start: 20120809
  2. AZITHROMYCIN [Concomitant]
  3. CRESTOR [Concomitant]
  4. SYNTHROID [Concomitant]
  5. PREDNISONE [Concomitant]
  6. ADVAIR [Concomitant]
  7. SENOKOT [Concomitant]
  8. OXAZEPAM [Concomitant]
  9. RABEPRAZOLE [Concomitant]
  10. ASPIRIN [Concomitant]
     Route: 065

REACTIONS (1)
  - Malaise [Not Recovered/Not Resolved]
